FAERS Safety Report 5817844-1 (Version None)
Quarter: 2008Q3

REPORT INFORMATION
  Report Type: 
  Country: None (occurrence: None)
  Receive Date: 20080722
  Receipt Date: 20070608
  Transmission Date: 20090109
  Serious: Yes (Other)
  Sender: FDA-Public Use
  Company Number: US-BAYER-US-2007-017717

PATIENT
  Sex: Female
  Weight: 66 kg

DRUGS (1)
  1. MAGNEVIST [Suspect]
     Indication: NUCLEAR MAGNETIC RESONANCE IMAGING
     Dosage: UNIT DOSE: 20 ML
     Route: 042
     Dates: start: 20070503, end: 20070503

REACTIONS (3)
  - CHEST DISCOMFORT [None]
  - THROAT TIGHTNESS [None]
  - URTICARIA [None]
